FAERS Safety Report 8989237 (Version 2)
Quarter: 2013Q2

REPORT INFORMATION
  Report Type: Report from Study
  Country: CA (occurrence: CA)
  Receive Date: 20121228
  Receipt Date: 20130503
  Transmission Date: 20140414
  Serious: Yes (Other)
  Sender: FDA-Public Use
  Company Number: PHHY2012CA120519

PATIENT
  Sex: Female

DRUGS (1)
  1. CLOZARIL [Suspect]
     Dosage: 87.5 MG, AT NIGHT
     Route: 065
     Dates: start: 20110125

REACTIONS (2)
  - Urinary tract infection [Unknown]
  - Pneumonia [Unknown]
